FAERS Safety Report 20101825 (Version 1)
Quarter: 2021Q4

REPORT INFORMATION
  Report Type: Spontaneous
  Country: US (occurrence: US)
  Receive Date: 20211123
  Receipt Date: 20211123
  Transmission Date: 20220303
  Serious: Yes (Hospitalization, Other)
  Sender: FDA-Public Use
  Company Number: US-APOTEX-2021AP045398

PATIENT
  Age: 44 Year
  Sex: Female

DRUGS (1)
  1. SIROLIMUS [Suspect]
     Active Substance: SIROLIMUS
     Indication: Product used for unknown indication
     Dosage: UNK
     Route: 065
     Dates: start: 2018

REACTIONS (5)
  - Breast swelling [Recovering/Resolving]
  - Erythema [Unknown]
  - Peripheral swelling [Recovered/Resolved]
  - Pain [Unknown]
  - Ascites [Recovered/Resolved]
